FAERS Safety Report 10151522 (Version 1)
Quarter: 2014Q2

REPORT INFORMATION
  Report Type: Report from Study
  Country: BR (occurrence: BR)
  Receive Date: 20140503
  Receipt Date: 20140503
  Transmission Date: 20141212
  Serious: Yes (Hospitalization, Other)
  Sender: FDA-Public Use
  Company Number: PHHY2014BR051693

PATIENT
  Age: 88 Year
  Sex: Female
  Weight: 76 kg

DRUGS (4)
  1. DIOVAN [Suspect]
     Indication: HYPERTENSION
     Dosage: 2 DF (STRENGTH: 160 MG), UNK
     Route: 048
     Dates: start: 201401, end: 201401
  2. DIOVAN [Suspect]
     Dosage: 1 DF (STRENGTH: 160 MG), UNK
     Route: 048
     Dates: start: 201401, end: 201401
  3. DIOVAN [Suspect]
     Dosage: 80 MG, UNK
     Dates: start: 201402
  4. LOSARTAN [Suspect]
     Indication: HYPERTENSION
     Dosage: 1 DF (50 MG), DAILY
     Route: 048
     Dates: end: 201401

REACTIONS (8)
  - Blood pressure systolic increased [Recovering/Resolving]
  - Hepatic steatosis [Recovering/Resolving]
  - Aortic aneurysm [Recovering/Resolving]
  - Haemorrhage [Recovering/Resolving]
  - Dizziness [Recovering/Resolving]
  - Vertigo [Recovering/Resolving]
  - Swelling [Recovering/Resolving]
  - Blood pressure decreased [Recovering/Resolving]
